FAERS Safety Report 11716999 (Version 3)
Quarter: 2015Q4

REPORT INFORMATION
  Report Type: Spontaneous
  Country: US (occurrence: US)
  Receive Date: 20151104
  Receipt Date: 20151120
  Transmission Date: 20160304
  Serious: No
  Sender: FDA-Public Use
  Company Number: US-ELI_LILLY_AND_COMPANY-US201108004490

PATIENT
  Sex: Female

DRUGS (4)
  1. FORTEO [Suspect]
     Active Substance: TERIPARATIDE
     Dosage: 20 UG, QD
  2. FORTEO [Suspect]
     Active Substance: TERIPARATIDE
     Indication: OSTEOPOROSIS
     Dosage: 20 UG, QD
  3. ANALGESICS [Concomitant]
     Active Substance: UNSPECIFIED INGREDIENT
  4. FORTEO [Suspect]
     Active Substance: TERIPARATIDE
     Dosage: 20 UG, QD
     Dates: end: 201212

REACTIONS (5)
  - Cholelithiasis [Unknown]
  - Pain in extremity [Unknown]
  - Bone density decreased [Unknown]
  - Injection site pain [Recovered/Resolved]
  - Fatigue [Unknown]
